FAERS Safety Report 14870647 (Version 1)
Quarter: 2018Q2

REPORT INFORMATION
  Report Type: Spontaneous
  Country: US (occurrence: US)
  Receive Date: 20180423
  Receipt Date: 20180423
  Transmission Date: 20180711
  Serious: Yes (Disabling)
  Sender: FDA-Public Use
  Company Number: None

PATIENT
  Age: 36 Year
  Sex: Male
  Weight: 81.65 kg

DRUGS (1)
  1. SERTRALINE, 50MG AN [Suspect]
     Active Substance: SERTRALINE HYDROCHLORIDE

REACTIONS (4)
  - Blood testosterone decreased [None]
  - Headache [None]
  - Loss of libido [None]
  - Feeling abnormal [None]

NARRATIVE: CASE EVENT DATE: 20080915
